FAERS Safety Report 21290637 (Version 3)
Quarter: 2023Q1

REPORT INFORMATION
  Report Type: Spontaneous
  Country: CA (occurrence: CA)
  Receive Date: 20220903
  Receipt Date: 20230321
  Transmission Date: 20230417
  Serious: Yes (Hospitalization, Other)
  Sender: FDA-Public Use
  Company Number: CA-CELLTRION INC.-2021CA018818

PATIENT

DRUGS (3)
  1. INFLECTRA [Suspect]
     Active Substance: INFLIXIMAB-DYYB
     Indication: Colitis ulcerative
     Dosage: 300 MG; (PRESCRIBED DOSAGE IS 5 MG/KG ROUNDED TO THE NEAREST HUNDRED EVERY 8 WEEKS)
     Route: 042
     Dates: start: 20220112
  2. INFLECTRA [Suspect]
     Active Substance: INFLIXIMAB-DYYB
     Dosage: 5 MG/KG ROUNDED TO THE NEAREST HUNDRED EVERY 8 WEEKS
     Route: 042
     Dates: start: 20220629
  3. INFLECTRA [Suspect]
     Active Substance: INFLIXIMAB-DYYB
     Dosage: 5 MG/KG, EVERY 8 WEEKS, ROUNDED TO THE NEAREST HUNDRED EVERY 8 WEEKS
     Route: 042
     Dates: start: 20221005

REACTIONS (7)
  - Tonsillitis [Recovering/Resolving]
  - Eye disorder [Unknown]
  - COVID-19 [Recovering/Resolving]
  - Off label use [Unknown]
  - Intentional product use issue [Unknown]
  - Incorrect dose administered [Unknown]
  - Inappropriate schedule of product administration [Unknown]

NARRATIVE: CASE EVENT DATE: 20220101
